FAERS Safety Report 12957832 (Version 1)
Quarter: 2016Q4

REPORT INFORMATION
  Report Type: Spontaneous
  Country: AU (occurrence: AU)
  Receive Date: 20161118
  Receipt Date: 20161118
  Transmission Date: 20170207
  Serious: Yes (Hospitalization)
  Sender: FDA-Public Use
  Company Number: AU-IMPAX LABORATORIES, INC-2016-IPXL-01560

PATIENT
  Age: 51 Year
  Sex: Female
  Weight: 66 kg

DRUGS (8)
  1. CLONIDINE HYDROCHLORIDE. [Suspect]
     Active Substance: CLONIDINE HYDROCHLORIDE
     Dosage: 18000 MCG (1000 MCG/ML) IN 18 ML OF 0.9% SALINE
     Route: 037
  2. MORPHINE [Concomitant]
     Active Substance: MORPHINE
     Dosage: 90 MG (5 MG/ML) IN 18 ML OF 0.9% SALINE
     Route: 037
  3. MORPHINE [Concomitant]
     Active Substance: MORPHINE
     Dosage: 0.5 MG AT RATE OF 0.1 ML/DAY
     Route: 037
  4. CLONIDINE HYDROCHLORIDE. [Suspect]
     Active Substance: CLONIDINE HYDROCHLORIDE
     Dosage: 200 ?G AT RATE OF 0.2 ML/DAY
     Route: 037
  5. CLONIDINE HYDROCHLORIDE. [Suspect]
     Active Substance: CLONIDINE HYDROCHLORIDE
     Dosage: 0.1 MG AT RATE OF 0.1 ML/DAY
     Route: 037
  6. MORPHINE [Concomitant]
     Active Substance: MORPHINE
     Indication: ANALGESIC THERAPY
     Dosage: 1 MG AT RATE OF 0.2 ML/DAY
     Route: 037
  7. CLONIDINE HYDROCHLORIDE. [Suspect]
     Active Substance: CLONIDINE HYDROCHLORIDE
     Indication: ANALGESIC THERAPY
     Dosage: 200 ?G AT RATE OF 0.2 ML/DAY
     Route: 037
  8. MORPHINE [Concomitant]
     Active Substance: MORPHINE
     Dosage: 1 MG AT RATE OF 0.2 ML/DAY
     Route: 037

REACTIONS (9)
  - Acute myocardial infarction [Unknown]
  - Hypertension [Unknown]
  - Device malfunction [Unknown]
  - Pulmonary embolism [Unknown]
  - Depressed level of consciousness [Unknown]
  - Accidental overdose [Unknown]
  - Mydriasis [Unknown]
  - Cardiac failure [Unknown]
  - Bradycardia [Unknown]
